FAERS Safety Report 5639688-6 (Version None)
Quarter: 2008Q1

REPORT INFORMATION
  Report Type: 
  Country: None (occurrence: None)
  Receive Date: 20080131
  Receipt Date: 20071031
  Transmission Date: 20080703
  Serious: Yes (Hospitalization)
  Sender: FDA-Public Use
  Company Number: 163-21880-0710179494

PATIENT
  Age: 67 Year
  Sex: Female
  Weight: 91 kg

DRUGS (1)
  1. REVLIMID [Suspect]
     Indication: MULTIPLE MYELOMA
     Dosage: 25 MG, QD, ORAL
     Route: 048
     Dates: start: 20070501

REACTIONS (2)
  - ANAEMIA [None]
  - CARDIAC FAILURE CONGESTIVE [None]
